FAERS Safety Report 7674519-4 (Version None)
Quarter: 2011Q3

REPORT INFORMATION
  Report Type: 
  Country: None (occurrence: None)
  Receive Date: 20110810
  Receipt Date: 20110801
  Transmission Date: 20111222
  Serious: Yes (Other)
  Sender: FDA-Public Use
  Company Number: PHHY2011US66233

PATIENT
  Sex: Female

DRUGS (1)
  1. GILENYA [Suspect]
     Indication: MULTIPLE SCLEROSIS
     Dosage: 0.5 MG,DAILY
     Route: 048
     Dates: start: 20110713

REACTIONS (2)
  - ATRIOVENTRICULAR BLOCK [None]
  - NASOPHARYNGITIS [None]
